FAERS Safety Report 8861425 (Version 1)
Quarter: 2012Q4

REPORT INFORMATION
  Report Type: Spontaneous
  Country: US (occurrence: None)
  Receive Date: 20121022
  Receipt Date: 20121022
  Transmission Date: 20130627
  Serious: Yes (Death, Hospitalization, Other)
  Sender: FDA-Public Use
  Company Number: USA/USA/12/0026233

PATIENT
  Age: 59 Year
  Sex: Male

DRUGS (2)
  1. TACROLIMUS CAPSULES [Suspect]
  2. PREDNISONE (PREDNISONE) [Suspect]

REACTIONS (14)
  - Pyrexia [None]
  - Hypotension [None]
  - Skin lesion [None]
  - Purulence [None]
  - Pneumonia streptococcal [None]
  - Cytomegalovirus infection [None]
  - Pneumonia [None]
  - Clostridium difficile colitis [None]
  - Aortic stenosis [None]
  - Pulmonary hypertension [None]
  - Renal failure [None]
  - Mycobacterial infection [None]
  - Septic shock [None]
  - Delirium [None]
